FAERS Safety Report 9512013 (Version 1)
Quarter: 2013Q3

REPORT INFORMATION
  Report Type: Spontaneous
  Country: US (occurrence: US)
  Receive Date: 20130910
  Receipt Date: 20130910
  Transmission Date: 20140515
  Serious: Yes (Other)
  Sender: FDA-Public Use
  Company Number: 2013SP002550

PATIENT
  Age: 77 Year
  Sex: Female
  Weight: 80 kg

DRUGS (10)
  1. LEVALBUTEROL INHALATION SOLUTION [Suspect]
     Indication: CHRONIC OBSTRUCTIVE PULMONARY DISEASE
     Route: 055
     Dates: start: 2012
  2. LEVALBUTEROL INHALATION SOLUTION [Suspect]
     Indication: EMPHYSEMA
     Route: 055
     Dates: start: 2012
  3. XOPENEX INHALATION SOLUTION [Suspect]
     Indication: CHRONIC OBSTRUCTIVE PULMONARY DISEASE
     Route: 055
  4. XOPENEX INHALATION SOLUTION [Suspect]
     Indication: EMPHYSEMA
     Route: 055
  5. ADVAIR [Concomitant]
     Indication: PRODUCT USED FOR UNKNOWN INDICATION
     Route: 055
  6. VENTOLIN /00139501/ [Concomitant]
     Indication: PRODUCT USED FOR UNKNOWN INDICATION
     Route: 055
  7. CARDIA [Concomitant]
     Indication: PRODUCT USED FOR UNKNOWN INDICATION
     Route: 048
  8. IPRATROPIUM BROMIDE [Concomitant]
     Indication: CHRONIC OBSTRUCTIVE PULMONARY DISEASE
     Route: 055
  9. IPRATROPIUM BROMIDE [Concomitant]
     Indication: EMPHYSEMA
     Route: 055
  10. OXYGEN [Concomitant]
     Indication: PRODUCT USED FOR UNKNOWN INDICATION

REACTIONS (5)
  - Vulval cancer [Not Recovered/Not Resolved]
  - Dyspnoea [Not Recovered/Not Resolved]
  - Drug ineffective [None]
  - Disease progression [Unknown]
  - Inappropriate schedule of drug administration [None]
